FAERS Safety Report 4881188-5 (Version None)
Quarter: 2006Q1

REPORT INFORMATION
  Report Type: 
  Country: None (occurrence: None)
  Receive Date: 20060111
  Receipt Date: 20060111
  Transmission Date: 20060701
  Serious: Yes (Other)
  Sender: FDA-Public Use
  Company Number: None

PATIENT
  Sex: Male
  Weight: 81.6475 kg

DRUGS (1)
  1. ALDARA [Suspect]
     Dosage: SMALL AMT 3X / WEEK TOPICAL
     Route: 061
     Dates: start: 20051118, end: 20051228

REACTIONS (3)
  - FATIGUE [None]
  - MALAISE [None]
  - STOMACH DISCOMFORT [None]
